FAERS Safety Report 6612098 (Version 2)
Quarter: 2012Q4

REPORT INFORMATION
  Report Type: 
  Country: CA (occurrence: CA)
  Receive Date: 20080411
  Receipt Date: 20121022
  Transmission Date: 20130627
  Serious: Yes (Other)
  Sender: FDA-Public Use
  Company Number: PHMT2007CA01000

PATIENT
  Age: 53 None
  Sex: Female

DRUGS (3)
  1. SANDOSTATIN LAR [Suspect]
     Indication: CARCINOID TUMOUR
     Dosage: 30 mg every 4 weeks
     Route: 030
     Dates: start: 19991201
  2. SANDOSTATIN LAR [Suspect]
     Dosage: 30 mg every 3 weeks
     Route: 030
  3. PROCHLORPERAZINE [Concomitant]
     Dosage: UNK UKN, PRN

REACTIONS (17)
  - Loss of consciousness [Unknown]
  - Hypoaesthesia [Unknown]
  - Flushing [Unknown]
  - Palpitations [Unknown]
  - Vision blurred [Unknown]
  - Hypoacusis [Unknown]
  - Toxicity to various agents [Unknown]
  - Haemorrhage [Unknown]
  - Muscular weakness [Unknown]
  - Cyanosis [Unknown]
  - Feeling abnormal [Unknown]
  - Stomatitis [Unknown]
  - Skin infection [Unknown]
  - Muscle spasms [Recovered/Resolved]
  - Myalgia [Unknown]
  - Dyspnoea [Unknown]
  - Asthenia [Unknown]
